FAERS Safety Report 4571889-0 (Version None)
Quarter: 2005Q1

REPORT INFORMATION
  Report Type: 
  Country: None (occurrence: None)
  Receive Date: 20050207
  Receipt Date: 20050128
  Transmission Date: 20050727
  Serious: Yes (Death)
  Sender: FDA-Public Use
  Company Number: PHBS2005JP01607

PATIENT
  Age: 68 Year
  Sex: Male
  Weight: 61 kg

DRUGS (4)
  1. DIOVAN [Suspect]
     Indication: HYPERTENSION
     Dosage: 80 MG, QD
     Route: 048
     Dates: start: 20040713
  2. PLETAL [Concomitant]
     Indication: ATHEROSCLEROSIS OBLITERANS
     Dosage: 200 MG, UNK
     Route: 048
     Dates: start: 20040225
  3. URINORM [Concomitant]
     Indication: HYPERURICAEMIA
     Dosage: 100 MG, UNK
     Route: 048
     Dates: start: 20040717
  4. URALYT [Concomitant]
     Indication: HYPERURICAEMIA
     Dosage: 6 DF, UNK
     Route: 048
     Dates: start: 20040329

REACTIONS (4)
  - HELICOBACTER INFECTION [None]
  - MYOCARDIAL INFARCTION [None]
  - THROAT IRRITATION [None]
  - TREATMENT NONCOMPLIANCE [None]
